FAERS Safety Report 15943529 (Version 2)
Quarter: 2019Q3

REPORT INFORMATION
  Report Type: Spontaneous
  Country: JP (occurrence: JP)
  Receive Date: 20190210
  Receipt Date: 20190919
  Transmission Date: 20191004
  Serious: Yes (Death, Other)
  Sender: FDA-Public Use
  Company Number: PHJP2019JP001534

PATIENT
  Age: 62 Year
  Sex: Male
  Weight: 82.9 kg

DRUGS (4)
  1. SENNOSIDE [Concomitant]
     Active Substance: SENNOSIDES
     Indication: CONSTIPATION
     Dosage: 12 MG, BID
     Route: 048
     Dates: start: 20170920, end: 20180905
  2. MEKINIST [Suspect]
     Active Substance: TRAMETINIB DIMETHYL SULFOXIDE
     Indication: MALIGNANT MELANOMA
     Dosage: 2 MG, QD
     Route: 048
     Dates: start: 20170621, end: 20180821
  3. PREDONINE [Concomitant]
     Active Substance: PREDNISOLONE
     Indication: PRODUCT USED FOR UNKNOWN INDICATION
     Dosage: 10 MG, QD
     Route: 048
     Dates: start: 20170719, end: 20181018
  4. TAFINLAR [Suspect]
     Active Substance: DABRAFENIB MESYLATE
     Indication: MALIGNANT MELANOMA
     Dosage: 150 MG, BID
     Route: 048
     Dates: start: 20170621, end: 20180821

REACTIONS (6)
  - Malignant neoplasm progression [Fatal]
  - Cardiac dysfunction [Recovered/Resolved]
  - Cardiac dysfunction [Recovered/Resolved]
  - Cardiac failure [Unknown]
  - Malignant melanoma [Fatal]
  - Arrhythmia [Unknown]

NARRATIVE: CASE EVENT DATE: 20180718
